FAERS Safety Report 8592003-0 (Version None)
Quarter: 2012Q3

REPORT INFORMATION
  Report Type: 
  Country: None (occurrence: None)
  Receive Date: 20120814
  Receipt Date: 20120808
  Transmission Date: 20120928
  Serious: Yes (Hospitalization)
  Sender: FDA-Public Use
  Company Number: SE-PFIZER INC-2012194122

PATIENT
  Age: 68 Year
  Sex: Male

DRUGS (6)
  1. ASPIRIN [Concomitant]
     Dosage: 75 MG, UNK
  2. AMLODIPINE [Concomitant]
     Dosage: 5 MG, UNK
  3. ARMODAFINIL [Suspect]
     Indication: FUNGAL INFECTION
     Dosage: UNK
     Route: 048
     Dates: start: 20120514, end: 20120523
  4. REPAGLINIDE [Concomitant]
     Dosage: 2 MG, UNK
  5. METFORMIN [Concomitant]
     Dosage: UNK
  6. SIMVASTATIN [Concomitant]
     Dosage: UNK

REACTIONS (1)
  - TONGUE OEDEMA [None]
